FAERS Safety Report 25350368 (Version 2)
Quarter: 2025Q3

REPORT INFORMATION
  Report Type: Spontaneous
  Country: US (occurrence: US)
  Receive Date: 20250523
  Receipt Date: 20250703
  Transmission Date: 20251021
  Serious: Yes (Hospitalization)
  Sender: LEO PHARM
  Company Number: US-LEO Pharma-379877

PATIENT
  Age: 57 Year
  Sex: Female

DRUGS (1)
  1. ADBRY [Suspect]
     Active Substance: TRALOKINUMAB-LDRM
     Indication: Ovarian cancer

REACTIONS (3)
  - Product use in unapproved indication [Unknown]
  - Chemotherapy [Unknown]
  - Adverse drug reaction [Unknown]
